FAERS Safety Report 5236825-2 (Version None)
Quarter: 2007Q1

REPORT INFORMATION
  Report Type: 
  Country: None (occurrence: None)
  Receive Date: 20070213
  Receipt Date: 20070207
  Transmission Date: 20070707
  Serious: Yes (Other)
  Sender: FDA-Public Use
  Company Number: US-JNJFOC-20070201973

PATIENT
  Sex: Female
  Weight: 58.97 kg

DRUGS (6)
  1. EXTRA STRENGTH TYLENOL [Suspect]
  2. EXTRA STRENGTH TYLENOL [Suspect]
     Indication: ARTHRALGIA
     Dosage: AT HOUR OF SLEEP
  3. NORVASC [Concomitant]
     Indication: HYPERTENSION
     Dosage: ^YEARS^
  4. ISOSORBIDE [Concomitant]
     Indication: CARDIAC DISORDER
     Dosage: ^YEARS^
  5. SIMVASTATIN [Concomitant]
     Indication: CARDIAC DISORDER
     Dosage: ^YEARS^
  6. CALCIUM CARBONATE [Concomitant]
     Indication: NUTRITIONAL SUPPORT
     Dosage: ^YEARS^

REACTIONS (2)
  - ABDOMINAL PAIN UPPER [None]
  - HAEMATEMESIS [None]
